FAERS Safety Report 8148666 (Version 5)
Quarter: 2012Q4

REPORT INFORMATION
  Report Type: 
  Country: US (occurrence: US)
  Receive Date: 20110922
  Receipt Date: 20121219
  Transmission Date: 20130627
  Serious: Yes (Hospitalization, Other)
  Sender: FDA-Public Use
  Company Number: US-ASTRAZENECA-2011SE24591

PATIENT
  Age: 73 Year
  Sex: Female

DRUGS (14)
  1. SEROQUEL [Suspect]
     Indication: BIPOLAR DISORDER
     Dosage: 200 MG, 1 IN THE MORNING AND 2 IN THE EVENING
     Route: 048
  2. CLONAZEPAM [Concomitant]
  3. GLIPIZIDE [Concomitant]
  4. LORAZEPAM [Concomitant]
     Dosage: 1 IN AM AND 2 IN PM
     Route: 048
  5. ZOLPIDEM TARTRATE [Concomitant]
  6. TETRACYCLINE [Concomitant]
  7. CITALOPRAM [Concomitant]
  8. METFORMIN HCL [Concomitant]
  9. AMOXICILLIN [Concomitant]
  10. HYDROCODONE-APAP [Concomitant]
     Indication: PAIN
     Dosage: 7.5 TO 650 TAKE ONE EVERY 4 TO 6 HOURS AS NEEDED
  11. HYDROCODONE-APAP [Concomitant]
     Indication: PAIN
     Dosage: 7.5 TO 650 TAKE ONE OT TWO TABLETS EVERY 4 TO 6 HOURS AS NEEDED
  12. BACITRACIN [Concomitant]
     Indication: SCAR
     Dosage: 500 UNITS/GM 1 FORTH INCH TO INCISION TWICE DAILY
  13. LOVASTATIN [Concomitant]
  14. AZITHROMYCIN [Concomitant]
     Dosage: 2 TABLET ON FIST DAY AND 1 DAILY THERE AFTER

REACTIONS (17)
  - Suicidal ideation [Unknown]
  - Withdrawal syndrome [Unknown]
  - Mental disorder [Unknown]
  - Agitation [Unknown]
  - Depression [Unknown]
  - Anger [Unknown]
  - Feeling abnormal [Unknown]
  - Anxiety [Unknown]
  - Fear [Unknown]
  - Hallucination [Unknown]
  - Dissociative fugue [Unknown]
  - Intentional drug misuse [Unknown]
  - Confusional state [Unknown]
  - Malaise [Unknown]
  - Hallucination, visual [Unknown]
  - Lethargy [Unknown]
  - Drug dose omission [Unknown]
